FAERS Safety Report 4284717-8 (Version None)
Quarter: 2004Q1

REPORT INFORMATION
  Report Type: 
  Country: None (occurrence: None)
  Receive Date: 20040203
  Receipt Date: 20040126
  Transmission Date: 20041129
  Serious: Yes (Death)
  Sender: FDA-Public Use
  Company Number: C2003-3285.01

PATIENT
  Age: 56 Year
  Sex: Male

DRUGS (6)
  1. CLOZAPINE [Suspect]
     Dosage: 50 MG QAM AND 250 MGQHS ORAL
     Route: 048
     Dates: start: 20020218
  2. BUDESONIDE [Concomitant]
  3. CEFTRIAXONE INTRAVENOUS [Concomitant]
  4. DIVALPROEX SODIUM [Concomitant]
  5. FAMOTIDINE [Concomitant]
  6. QUETIAPINE [Concomitant]

REACTIONS (2)
  - CHRONIC OBSTRUCTIVE AIRWAYS DISEASE [None]
  - UPPER RESPIRATORY TRACT INFECTION [None]
